FAERS Safety Report 10365178 (Version 3)
Quarter: 2014Q3

REPORT INFORMATION
  Report Type: Spontaneous
  Country: GB (occurrence: GB)
  Receive Date: 20140806
  Receipt Date: 20140919
  Transmission Date: 20150326
  Serious: Yes (Death, Hospitalization, Other)
  Sender: FDA-Public Use
  Company Number: PHHY2014GB093946

PATIENT
  Age: 68 Year
  Sex: Male

DRUGS (9)
  1. 5-FLUOROURACIL [Suspect]
     Active Substance: FLUOROURACIL
     Indication: PRODUCT USED FOR UNKNOWN INDICATION
     Dates: start: 20100531, end: 20140319
  2. FRESENIUS KABI OXALIPLATIN [Suspect]
     Active Substance: OXALIPLATIN
     Indication: RECTAL CANCER
     Dosage: 114 MG
  3. OMEPRAZOLE. [Suspect]
     Active Substance: OMEPRAZOLE
     Indication: PRODUCT USED FOR UNKNOWN INDICATION
  4. PREGABALINA [Suspect]
     Active Substance: PREGABALIN
     Indication: PRODUCT USED FOR UNKNOWN INDICATION
  5. FOLINIC ACID [Suspect]
     Active Substance: LEUCOVORIN
     Indication: PRODUCT USED FOR UNKNOWN INDICATION
     Dates: start: 20130918, end: 20140319
  6. PREDNISOLONE. [Suspect]
     Active Substance: PREDNISOLONE
  7. BUPRENORPHINE [Suspect]
     Active Substance: BUPRENORPHINE
     Indication: PRODUCT USED FOR UNKNOWN INDICATION
  8. AMITRIPTYLINE [Suspect]
     Active Substance: AMITRIPTYLINE
     Indication: DEPRESSION
  9. FRESENIUS KABI OXALIPLATIN [Suspect]
     Active Substance: OXALIPLATIN
     Dosage: OXALIPLATIN 100MG/20MLDOSAGE OF 114 MG OF 14/14 DAYS.

REACTIONS (5)
  - Drug interaction [Unknown]
  - Pneumonitis [Fatal]
  - Subileus [Unknown]
  - Pain [Unknown]
  - Acute respiratory distress syndrome [Fatal]

NARRATIVE: CASE EVENT DATE: 20140626
